FAERS Safety Report 5711782-0 (Version None)
Quarter: 2008Q2

REPORT INFORMATION
  Report Type: 
  Country: None (occurrence: None)
  Receive Date: 20080421
  Receipt Date: 20080409
  Transmission Date: 20081010
  Serious: Yes (Other)
  Sender: FDA-Public Use
  Company Number: BE-PFIZER INC-2008028141

PATIENT
  Sex: Female
  Weight: 63 kg

DRUGS (6)
  1. VFEND [Suspect]
     Indication: BRONCHOPULMONARY ASPERGILLOSIS ALLERGIC
     Route: 048
     Dates: start: 20071206, end: 20071207
  2. VFEND [Suspect]
     Route: 048
     Dates: start: 20071208, end: 20080112
  3. VFEND [Suspect]
     Route: 048
     Dates: start: 20080205, end: 20080219
  4. SERETIDE [Concomitant]
  5. MONTELUKAST SODIUM [Concomitant]
     Route: 048
  6. SPIRIVA [Concomitant]

REACTIONS (2)
  - DERMATITIS ALLERGIC [None]
  - VISUAL DISTURBANCE [None]
